FAERS Safety Report 9156913 (Version 1)
Quarter: 2013Q1

REPORT INFORMATION
  Report Type: Spontaneous
  Country: US (occurrence: None)
  Receive Date: 20130211
  Receipt Date: 20130211
  Transmission Date: 20140127
  Serious: No
  Sender: FDA-Public Use
  Company Number: 2013-00042

PATIENT
  Age: 62 Year
  Sex: Female

DRUGS (2)
  1. ZICAM EXTREME CONGESTION RELIEF [Suspect]
     Indication: NASOPHARYNGITIS
     Dosage: USED IN ONE NOSTRIL ONCE
     Dates: start: 20130105
  2. VITAMINS [Concomitant]

REACTIONS (2)
  - Anosmia [None]
  - Ageusia [None]
